FAERS Safety Report 10088043 (Version 3)
Quarter: 2014Q2

REPORT INFORMATION
  Report Type: Spontaneous
  Country: US (occurrence: US)
  Receive Date: 20140420
  Receipt Date: 20140520
  Transmission Date: 20141212
  Serious: Yes (Other)
  Sender: FDA-Public Use
  Company Number: US-009507513-1404USA010211

PATIENT
  Age: 20 Year
  Sex: Female
  Weight: 57.14 kg

DRUGS (2)
  1. NEXPLANON [Suspect]
     Indication: CONTRACEPTION
     Dosage: 1 ROD FOR THREE YEARS
     Route: 058
     Dates: start: 20130709, end: 2014
  2. NEXPLANON [Suspect]
     Dosage: 1 ROD FOR THREE YEARS
     Route: 058
     Dates: start: 2014

REACTIONS (2)
  - Abortion induced [Unknown]
  - Unintended pregnancy [Recovered/Resolved]
